FAERS Safety Report 19929775 (Version 1)
Quarter: 2021Q4

REPORT INFORMATION
  Report Type: Spontaneous
  Country: DE (occurrence: DE)
  Receive Date: 20211007
  Receipt Date: 20211007
  Transmission Date: 20220303
  Serious: Yes (Other)
  Sender: FDA-Public Use
  Company Number: DE-CHEPLA-C20180969

PATIENT
  Age: 60 Year
  Sex: Male
  Weight: 71 kg

DRUGS (2)
  1. PRAMIPEXOLE DIHYDROCHLORIDE [Suspect]
     Active Substance: PRAMIPEXOLE DIHYDROCHLORIDE
     Indication: Restless legs syndrome
     Dosage: 6.7 MILLIGRAM, QD, 6.7 MG; 0-0-1
     Route: 048
     Dates: start: 20160322
  2. TRETINOIN [Suspect]
     Active Substance: TRETINOIN
     Indication: Primary progressive multiple sclerosis
     Dosage: 90 MILLIGRAM, QD
     Route: 048
     Dates: start: 20160202, end: 20160920

REACTIONS (2)
  - Multiple sclerosis [Recovering/Resolving]
  - Product use in unapproved indication [Recovered/Resolved]

NARRATIVE: CASE EVENT DATE: 20160202
